FAERS Safety Report 23285403 (Version 1)
Quarter: 2023Q4

REPORT INFORMATION
  Report Type: Report from Study
  Country: BR (occurrence: BR)
  Receive Date: 20231211
  Receipt Date: 20231211
  Transmission Date: 20240110
  Serious: Yes (Other)
  Sender: FDA-Public Use
  Company Number: BR-ABBVIE-5527223

PATIENT
  Age: 39 Year
  Sex: Female

DRUGS (2)
  1. BOTOX [Suspect]
     Active Substance: ONABOTULINUMTOXINA
     Indication: Product used for unknown indication
     Dosage: TIME INTERVAL: AS NECESSARY
     Route: 065
     Dates: start: 20231116, end: 20231116
  2. BOTOX [Suspect]
     Active Substance: ONABOTULINUMTOXINA
     Indication: Product used for unknown indication
     Dosage: TIME INTERVAL: AS NECESSARY
     Route: 065
     Dates: start: 2017, end: 2017

REACTIONS (4)
  - Blindness unilateral [Unknown]
  - Eyelid ptosis [Unknown]
  - Post procedural complication [Unknown]
  - Road traffic accident [Unknown]

NARRATIVE: CASE EVENT DATE: 20230101
